FAERS Safety Report 4692034-7 (Version None)
Quarter: 2005Q2

REPORT INFORMATION
  Report Type: 
  Country: None (occurrence: None)
  Receive Date: 20050614
  Receipt Date: 20050603
  Transmission Date: 20051028
  Serious: Yes (Disabling, Other)
  Sender: FDA-Public Use
  Company Number: HQWYE260906JUN05

PATIENT
  Sex: Female

DRUGS (1)
  1. EFFEXOR [Suspect]

REACTIONS (8)
  - DRUG DEPENDENCE [None]
  - DRUG WITHDRAWAL SYNDROME [None]
  - HOT FLUSH [None]
  - MENTAL IMPAIRMENT [None]
  - MOOD SWINGS [None]
  - MUSCLE TWITCHING [None]
  - VISUAL DISTURBANCE [None]
  - WEIGHT INCREASED [None]
